FAERS Safety Report 16375445 (Version 2)
Quarter: 2019Q2

REPORT INFORMATION
  Report Type: Spontaneous
  Country: CH (occurrence: CH)
  Receive Date: 20190531
  Receipt Date: 20190612
  Transmission Date: 20190711
  Serious: No
  Sender: FDA-Public Use
  Company Number: CH-ASPEN-GLO2019CH005353

PATIENT
  Sex: Female

DRUGS (2)
  1. FONDAPARINUX SODIUM. [Suspect]
     Active Substance: FONDAPARINUX SODIUM
     Indication: THROMBOSIS PROPHYLAXIS
     Dosage: UNK
     Route: 065
     Dates: start: 20190121
  2. ORGARAN [Suspect]
     Active Substance: DANAPAROID SODIUM
     Indication: THROMBOSIS PROPHYLAXIS
     Dosage: 750 U, BID (IF  NON-SUFFICIENT EFFECT: 3X DAILY DURING 2-3 WEEKS).
     Route: 065
     Dates: start: 20181217, end: 20190121

REACTIONS (2)
  - Exposure during pregnancy [Unknown]
  - Off label use [Unknown]
